FAERS Safety Report 12589956 (Version 2)
Quarter: 2016Q3

REPORT INFORMATION
  Report Type: Spontaneous
  Country: JP (occurrence: JP)
  Receive Date: 20160725
  Receipt Date: 20160822
  Transmission Date: 20161109
  Serious: Yes (Death)
  Sender: FDA-Public Use
  Company Number: JP-SA-2016SA133327

PATIENT
  Age: 58 Year
  Sex: Male
  Weight: 60.6 kg

DRUGS (2)
  1. DECADRON [Concomitant]
     Active Substance: DEXAMETHASONE
     Indication: PREMEDICATION
     Dosage: 6.6 MG, EVERY ADM. OF DOCETAXEL
     Route: 065
     Dates: start: 20110613
  2. TAXOTERE [Suspect]
     Active Substance: DOCETAXEL
     Indication: LUNG NEOPLASM MALIGNANT
     Dosage: 100 MG/3 WEEKS
     Route: 042
     Dates: start: 20110613, end: 20110613

REACTIONS (4)
  - Dyspnoea [Unknown]
  - Condition aggravated [Fatal]
  - Pulmonary toxicity [Fatal]
  - Pyrexia [Unknown]

NARRATIVE: CASE EVENT DATE: 20110706
